FAERS Safety Report 9384313 (Version 1)
Quarter: 2013Q3

REPORT INFORMATION
  Report Type: Spontaneous
  Country: US (occurrence: US)
  Receive Date: 20130705
  Receipt Date: 20130705
  Transmission Date: 20140515
  Serious: No
  Sender: FDA-Public Use
  Company Number: US-009507513-1307USA002147

PATIENT
  Age: 54 Year
  Sex: Male
  Weight: 123.36 kg

DRUGS (3)
  1. PEGINTRON [Suspect]
     Indication: CHRONIC HEPATITIS C
     Dosage: 0.5 ML, QW
     Route: 059
     Dates: start: 20120621, end: 20121212
  2. PEGINTRON [Suspect]
     Dosage: 150 MICROGRAM, QW
     Route: 059
     Dates: start: 20130517
  3. RIBAPAK [Suspect]
     Dosage: 600 MG, BID
     Route: 048

REACTIONS (2)
  - Dyspnoea [Unknown]
  - Haemoglobin decreased [Unknown]
